FAERS Safety Report 15383284 (Version 1)
Quarter: 2018Q3

REPORT INFORMATION
  Report Type: Spontaneous
  Country: US (occurrence: US)
  Receive Date: 20180913
  Receipt Date: 20180913
  Transmission Date: 20181010
  Serious: Yes (Hospitalization)
  Sender: FDA-Public Use
  Company Number: US-NOVOPROD-620416

PATIENT
  Sex: Female

DRUGS (1)
  1. NOVOLOG MIX 70/30 [Suspect]
     Active Substance: INSULIN ASPART
     Indication: TYPE 2 DIABETES MELLITUS
     Dosage: UNK
     Route: 058

REACTIONS (3)
  - Hypoglycaemic unconsciousness [Recovered/Resolved]
  - Urinary tract infection [Recovering/Resolving]
  - Urosepsis [Recovering/Resolving]

NARRATIVE: CASE EVENT DATE: 20180605
